FAERS Safety Report 10144631 (Version 2)
Quarter: 2014Q2

REPORT INFORMATION
  Report Type: Spontaneous
  Country: US (occurrence: US)
  Receive Date: 20140430
  Receipt Date: 20140506
  Transmission Date: 20141212
  Serious: No
  Sender: FDA-Public Use
  Company Number: US-009507513-1404USA015509

PATIENT
  Sex: Male

DRUGS (9)
  1. REBETOL [Suspect]
     Indication: HEPATITIS C
     Dosage: 3 PILLS  BID
     Route: 048
     Dates: start: 20140320
  2. PEGASYS [Suspect]
     Indication: HEPATITIS C
     Dosage: 180 MICROGRAM,ONCE A WEEK
     Route: 058
     Dates: start: 20140320
  3. SOVALDI [Concomitant]
     Dosage: 400 MG, QD
  4. LISINOPRIL [Concomitant]
     Dosage: 5 MG, QD
  5. ZOPIDEM [Concomitant]
     Dosage: 1 AT NIGTH
  6. DOXAZOSIN GENERICON [Concomitant]
     Dosage: 1 MG, QD
  7. LAMOTRIGINE [Concomitant]
     Dosage: 200 MG, QD
  8. TRAMADOL HYDROCHLORIDE [Concomitant]
     Dosage: 100 MG, Q6H
  9. DIAZEPAM [Concomitant]
     Dosage: 10 MG, BID

REACTIONS (4)
  - Gait disturbance [Unknown]
  - Muscle spasms [Unknown]
  - Myalgia [Unknown]
  - Pain in extremity [Unknown]
